FAERS Safety Report 9532641 (Version 2)
Quarter: 2014Q1

REPORT INFORMATION
  Report Type: Spontaneous
  Country: FR (occurrence: FR)
  Receive Date: 20130918
  Receipt Date: 20140107
  Transmission Date: 20141002
  Serious: Yes (Other)
  Sender: FDA-Public Use
  Company Number: FR-ELI_LILLY_AND_COMPANY-FR201309002775

PATIENT
  Age: 63 Year
  Sex: Male

DRUGS (7)
  1. ALIMTA [Suspect]
     Indication: BRONCHIAL CARCINOMA
     Dosage: 500 MG/M2, UNK
     Route: 042
     Dates: start: 20130429, end: 20130521
  2. CARBOPLATIN [Suspect]
     Indication: BRONCHIAL CARCINOMA
     Dosage: UNK
     Dates: start: 20130521
  3. DEXAMETHASONE [Concomitant]
  4. SPECIAFOLDINE [Concomitant]
  5. VITAMIN B12 [Concomitant]
  6. ZOPHREN [Concomitant]
     Dosage: 8 MG, UNK
  7. SOLUMEDROL [Concomitant]
     Dosage: 40 MG, UNK
     Route: 042

REACTIONS (2)
  - Skin necrosis [Recovered/Resolved]
  - Off label use [Recovered/Resolved]
